FAERS Safety Report 17823526 (Version 1)
Quarter: 2020Q2

REPORT INFORMATION
  Report Type: Spontaneous
  Country: US (occurrence: US)
  Receive Date: 20200524
  Receipt Date: 20200524
  Transmission Date: 20200714
  Serious: Yes (Life-Threatening)
  Sender: FDA-Public Use
  Company Number: None

PATIENT
  Sex: Female

DRUGS (1)
  1. SYMBICORT [Suspect]
     Active Substance: BUDESONIDE\FORMOTEROL FUMARATE DIHYDRATE
     Indication: ASTHMA
     Dosage: ?          OTHER STRENGTH:TWO PUFFS;?
     Route: 055
     Dates: start: 20200410, end: 20200414

REACTIONS (6)
  - Dyspnoea [None]
  - Chest pain [None]
  - Chest discomfort [None]
  - Anaphylactic reaction [None]
  - Wheezing [None]
  - Cough [None]

NARRATIVE: CASE EVENT DATE: 20200414
